FAERS Safety Report 7515565-0 (Version None)
Quarter: 2011Q2

REPORT INFORMATION
  Report Type: 
  Country: None (occurrence: None)
  Receive Date: 20110601
  Receipt Date: 20110523
  Transmission Date: 20111010
  Serious: Yes (Life-Threatening, Hospitalization, Other)
  Sender: FDA-Public Use
  Company Number: CA-SANOFI-AVENTIS-F01200701072

PATIENT
  Age: 66 Year
  Sex: Male

DRUGS (9)
  1. BEVACIZUMAB [Suspect]
     Dosage: UNIT DOSE: 100 MG
     Route: 042
     Dates: start: 20060915, end: 20060915
  2. LEVOTHYROXINE SODIUM [Suspect]
     Route: 065
     Dates: start: 20070105
  3. ASPIRIN [Concomitant]
  4. OXALIPLATIN [Suspect]
     Route: 042
     Dates: start: 20060330, end: 20060330
  5. RAMIPRIL [Concomitant]
  6. CAPECITABINE [Suspect]
     Dosage: DOSE TEXT: 4300 MG FOR 2 WEEKS, Q3W
     Route: 048
     Dates: start: 20060330, end: 20060413
  7. METOPROLOL TARTRATE [Concomitant]
  8. FENTANYL [Concomitant]
  9. LIPITOR [Concomitant]

REACTIONS (2)
  - MYOCARDIAL INFARCTION [None]
  - ATRIAL FIBRILLATION [None]
